FAERS Safety Report 6023086-X (Version None)
Quarter: 2008Q4

REPORT INFORMATION
  Report Type: 
  Country: None (occurrence: None)
  Receive Date: 20081230
  Receipt Date: 20081222
  Transmission Date: 20090506
  Serious: Yes (Other)
  Sender: FDA-Public Use
  Company Number: US-JNJFOC-20081100200

PATIENT
  Sex: Female

DRUGS (8)
  1. REMICADE [Suspect]
     Route: 042
  2. REMICADE [Suspect]
     Route: 042
  3. REMICADE [Suspect]
     Route: 042
  4. REMICADE [Suspect]
     Indication: COLITIS ULCERATIVE
     Route: 042
  5. COUMADIN [Concomitant]
  6. XANAX [Concomitant]
  7. LEVSIN [Concomitant]
  8. ZOLOFT [Concomitant]

REACTIONS (1)
  - SUBCORNEAL PUSTULAR DERMATOSIS [None]
